FAERS Safety Report 12195186 (Version 1)
Quarter: 2016Q1

REPORT INFORMATION
  Report Type: Spontaneous
  Country: US (occurrence: None)
  Receive Date: 20160318
  Receipt Date: 20160318
  Transmission Date: 20160526
  Serious: Yes (Hospitalization)
  Sender: FDA-Public Use
  Company Number: None

PATIENT
  Age: 37 Year
  Sex: Female
  Weight: 76.1 kg

DRUGS (3)
  1. CISPLATIN. [Suspect]
     Active Substance: CISPLATIN
     Dates: end: 20151208
  2. ERBITUX [Suspect]
     Active Substance: CETUXIMAB
     Dates: end: 20151027
  3. TAXOTERE [Suspect]
     Active Substance: DOCETAXEL
     Dates: end: 20151027

REACTIONS (14)
  - Anaemia [None]
  - Malnutrition [None]
  - Myopathy [None]
  - Pulmonary embolism [None]
  - Nausea [None]
  - Vomiting [None]
  - Diarrhoea [None]
  - Staphylococcal infection [None]
  - Axonal neuropathy [None]
  - Cholecystectomy [None]
  - Radiculopathy [None]
  - Hypophagia [None]
  - Fatigue [None]
  - Dizziness [None]

NARRATIVE: CASE EVENT DATE: 20151231
